FAERS Safety Report 18711309 (Version 1)
Quarter: 2021Q1

REPORT INFORMATION
  Report Type: Spontaneous
  Country: US (occurrence: US)
  Receive Date: 20210106
  Receipt Date: 20210106
  Transmission Date: 20210419
  Serious: No
  Sender: FDA-Public Use
  Company Number: None

PATIENT
  Age: 49 Year
  Sex: Female

DRUGS (1)
  1. COSENTYX [Suspect]
     Active Substance: SECUKINUMAB
     Dosage: ?          OTHER FREQUENCY:OTHER;?
     Route: 058
     Dates: start: 202012

REACTIONS (5)
  - Dyspnoea [None]
  - Feeling abnormal [None]
  - Unevaluable event [None]
  - Urticaria [None]
  - Nausea [None]

NARRATIVE: CASE EVENT DATE: 20201221
